FAERS Safety Report 7352217-4 (Version None)
Quarter: 2011Q1

REPORT INFORMATION
  Report Type: 
  Country: None (occurrence: None)
  Receive Date: 20110309
  Receipt Date: 20110309
  Transmission Date: 20110831
  Serious: Yes (Hospitalization, Other)
  Sender: FDA-Public Use
  Company Number: None

PATIENT
  Age: 80 Year
  Sex: Male
  Weight: 79.3795 kg

DRUGS (1)
  1. ALLOPURINOL [Suspect]
     Indication: RENAL DISORDER
     Dosage: 300 MG PO
     Route: 048
     Dates: start: 20100310, end: 20100315

REACTIONS (1)
  - RASH GENERALISED [None]
